FAERS Safety Report 4674404-6 (Version None)
Quarter: 2005Q2

REPORT INFORMATION
  Report Type: 
  Country: None (occurrence: None)
  Receive Date: 20050524
  Receipt Date: 20050513
  Transmission Date: 20051028
  Serious: Yes (Death, Other)
  Sender: FDA-Public Use
  Company Number: US-SHR-04-024911

PATIENT
  Age: 34 Year
  Sex: Female
  Weight: 43.1 kg

DRUGS (11)
  1. YASMIN [Suspect]
     Indication: ACNE
     Dosage: 1 TAB(S), 1X/DAY, ORAL
     Route: 048
     Dates: start: 20031113, end: 20040305
  2. DOXYCYCLINE CAPSULE [Concomitant]
  3. CENTRUM (MINERALS NOS, VITAMINS NOS) [Concomitant]
  4. CITRUCEL (METHYLCELLULOSE) [Concomitant]
  5. BEANO (ALPHA-D-GALACTOSIDASE) [Concomitant]
  6. ALBUTEROL [Concomitant]
  7. ALLEGRA (FEXOFENADINE HYDROCHLORIDE) TABLET [Concomitant]
  8. FLONASE [Concomitant]
  9. BENZOYL PEROXIDE GEL [Concomitant]
  10. ISOTRETINOIN (CLARAVIS) CAPSULE [Concomitant]
  11. MINOCYCLINE HCL [Concomitant]

REACTIONS (12)
  - FACE INJURY [None]
  - FALL [None]
  - INJURY [None]
  - JOINT INJURY [None]
  - LOSS OF CONSCIOUSNESS [None]
  - PULMONARY EMBOLISM [None]
  - PULMONARY HAEMORRHAGE [None]
  - PULMONARY INFARCTION [None]
  - RESUSCITATION [None]
  - SUDDEN DEATH [None]
  - THROMBOSIS [None]
  - WEIGHT DECREASED [None]
